FAERS Safety Report 14248250 (Version 2)
Quarter: 2018Q1

REPORT INFORMATION
  Report Type: Other
  Country: US (occurrence: US)
  Receive Date: 20171204
  Receipt Date: 20180216
  Transmission Date: 20180508
  Serious: Yes (Hospitalization)
  Sender: FDA-Public Use
  Company Number: US-UNITED THERAPEUTICS-UNT-2017-015849

PATIENT
  Sex: Male
  Weight: 56.69 kg

DRUGS (5)
  1. COUMADIN [Concomitant]
     Active Substance: WARFARIN SODIUM
     Indication: PRODUCT USED FOR UNKNOWN INDICATION
     Dosage: UNK
     Route: 065
  2. TRACLEER [Concomitant]
     Active Substance: BOSENTAN
     Indication: PRODUCT USED FOR UNKNOWN INDICATION
     Route: 065
  3. TYVASO [Suspect]
     Active Substance: TREPROSTINIL
     Indication: PULMONARY ARTERIAL HYPERTENSION
     Dosage: 18 - 54 MICROGRAMS, QID
     Dates: start: 20140106
  4. TYVASO [Suspect]
     Active Substance: TREPROSTINIL
     Dosage: UNK
  5. ADCIRCA [Concomitant]
     Active Substance: TADALAFIL
     Indication: PRODUCT USED FOR UNKNOWN INDICATION
     Route: 065

REACTIONS (2)
  - Arthritis infective [Unknown]
  - Hypotension [Unknown]

NARRATIVE: CASE EVENT DATE: 2017
